FAERS Safety Report 10435345 (Version 1)
Quarter: 2014Q3

REPORT INFORMATION
  Report Type: Spontaneous
  Country: US (occurrence: US)
  Receive Date: 20140908
  Receipt Date: 20140908
  Transmission Date: 20150326
  Serious: Yes (Other)
  Sender: FDA-Public Use
  Company Number: US-AMGEN-USASP2014067119

PATIENT
  Age: 16 Year
  Sex: Female

DRUGS (1)
  1. ENBREL [Suspect]
     Active Substance: ETANERCEPT
     Indication: PRODUCT USED FOR UNKNOWN INDICATION
     Dosage: 50 ML, QWK
     Route: 065
     Dates: start: 20140828

REACTIONS (12)
  - Paraesthesia [Recovered/Resolved]
  - Stress [Recovered/Resolved]
  - Pallor [Not Recovered/Not Resolved]
  - Injection site pain [Recovered/Resolved]
  - Feeling abnormal [Unknown]
  - Crying [Recovered/Resolved]
  - Urine ketone body present [Not Recovered/Not Resolved]
  - Fatigue [Not Recovered/Not Resolved]
  - Injection site bruising [Unknown]
  - Injection site haemorrhage [Recovered/Resolved]
  - Blood glucose fluctuation [Not Recovered/Not Resolved]
  - Therapeutic response decreased [Unknown]

NARRATIVE: CASE EVENT DATE: 2014
